FAERS Safety Report 8869130 (Version 1)
Quarter: 2012Q4

REPORT INFORMATION
  Report Type: 
  Country: US (occurrence: US)
  Receive Date: 20121029
  Receipt Date: 20121029
  Transmission Date: 20130627
  Serious: No
  Sender: FDA-Public Use
  Company Number: US-009507513-2012SP025951

PATIENT
  Age: 61 Year
  Sex: Male
  Weight: 92.99 kg

DRUGS (2)
  1. PEGINTRON [Suspect]
     Dosage: 150 micrograms/ 0.5 milliliter, qw
     Route: 058
     Dates: start: 20111115
  2. TELAPREVIR [Suspect]

REACTIONS (2)
  - Confusional state [Unknown]
  - Cognitive disorder [Unknown]
